FAERS Safety Report 19623079 (Version 2)
Quarter: 2021Q4

REPORT INFORMATION
  Report Type: Spontaneous
  Country: AT (occurrence: AT)
  Receive Date: 20210728
  Receipt Date: 20211220
  Transmission Date: 20220303
  Serious: Yes (Hospitalization)
  Sender: FDA-Public Use
  Company Number: AT-CELGENE-AUT-20210704685

PATIENT
  Age: 59 Year
  Sex: Male
  Weight: 85 kg

DRUGS (15)
  1. AZACITIDINE [Suspect]
     Active Substance: AZACITIDINE
     Indication: Myelodysplastic syndrome
     Dosage: 75 MILLIGRAM/SQ. METER
     Route: 058
     Dates: start: 20210527
  2. VENETOCLAX [Suspect]
     Active Substance: VENETOCLAX
     Indication: Myelodysplastic syndrome
     Dosage: 400 MILLIGRAM
     Route: 048
     Dates: start: 20210527
  3. VICTOZA [Concomitant]
     Active Substance: LIRAGLUTIDE
     Indication: Type 2 diabetes mellitus
     Route: 058
     Dates: start: 202104, end: 20210523
  4. VICTOZA [Concomitant]
     Active Substance: LIRAGLUTIDE
     Route: 058
     Dates: start: 20210524, end: 20210606
  5. METFORMIN [Concomitant]
     Active Substance: METFORMIN HYDROCHLORIDE
     Indication: Type 2 diabetes mellitus
     Dosage: 2000 MILLIGRAM
     Route: 048
     Dates: start: 2016
  6. JARDIANCE [Concomitant]
     Active Substance: EMPAGLIFLOZIN
     Indication: Type 2 diabetes mellitus
     Dosage: 10 MILLIGRAM
     Route: 048
     Dates: start: 202005
  7. ASPIRIN [Concomitant]
     Active Substance: ASPIRIN
     Indication: Coronary artery disease
     Dosage: 50 MILLIGRAM
     Route: 048
     Dates: start: 2006
  8. ASPIRIN [Concomitant]
     Active Substance: ASPIRIN
     Indication: Peripheral arterial occlusive disease
  9. ATORVASTATIN CALCIUM [Concomitant]
     Active Substance: ATORVASTATIN CALCIUM
     Indication: Hyperlipidaemia
     Dosage: 80 MILLIGRAM
     Route: 048
     Dates: start: 202008
  10. PANTOPRAZOLE SODIUM [Concomitant]
     Active Substance: PANTOPRAZOLE SODIUM
     Indication: Prophylaxis
     Dosage: 20 MILLIGRAM
     Route: 048
     Dates: start: 202101
  11. Oleovit [Concomitant]
     Indication: Supportive care
     Dosage: 4.2857 DROPS
     Route: 048
     Dates: start: 20210528
  12. EVENING PRIMROSE OIL\HERBALS [Concomitant]
     Active Substance: EVENING PRIMROSE OIL\HERBALS
     Indication: Injection site inflammation
     Route: 058
     Dates: start: 20210529
  13. Motrim [Concomitant]
     Indication: Antibiotic prophylaxis
     Dosage: 400 MILLIGRAM
     Route: 058
     Dates: start: 20210625
  14. METAMIZOLE [Concomitant]
     Active Substance: METAMIZOLE
     Indication: Dysphagia
     Dosage: 40 DROPS
     Route: 048
     Dates: start: 20210514
  15. METAMIZOLE [Concomitant]
     Active Substance: METAMIZOLE
     Indication: Odynophagia

REACTIONS (1)
  - C-reactive protein increased [Recovered/Resolved]

NARRATIVE: CASE EVENT DATE: 20210712
